FAERS Safety Report 7966955-3 (Version None)
Quarter: 2011Q4

REPORT INFORMATION
  Report Type: 
  Country: None (occurrence: None)
  Receive Date: 20111207
  Receipt Date: 20111207
  Transmission Date: 20120403
  Serious: Yes (Other)
  Sender: FDA-Public Use
  Company Number: None

PATIENT
  Age: 14 Year
  Sex: Male

DRUGS (1)
  1. COPAXONE [Suspect]
     Indication: MULTIPLE SCLEROSIS
     Dosage: COPAXONE 20MG DAILY SUBCUTANEOUSLY
     Route: 058
     Dates: start: 20110701, end: 20111205

REACTIONS (4)
  - PYREXIA [None]
  - NO REACTION ON PREVIOUS EXPOSURE TO DRUG [None]
  - DYSPNOEA [None]
  - NASOPHARYNGITIS [None]
